FAERS Safety Report 9586562 (Version 1)
Quarter: 2013Q3

REPORT INFORMATION
  Report Type: Spontaneous
  Country: ES (occurrence: None)
  Receive Date: 20130926
  Receipt Date: 20130926
  Transmission Date: 20140515
  Serious: No
  Sender: FDA-Public Use
  Company Number: 2013-01398

PATIENT
  Age: 6 Day
  Sex: Male

DRUGS (3)
  1. VALPROATE [Suspect]
     Indication: PRODUCT USED FOR UNKNOWN INDICATION
  2. PHENOBARBITAL [Concomitant]
  3. PHENYTOIN [Concomitant]

REACTIONS (2)
  - Accidental overdose [None]
  - Hyperammonaemic encephalopathy [None]
